FAERS Safety Report 4724102-5 (Version None)
Quarter: 2005Q3

REPORT INFORMATION
  Report Type: 
  Country: None (occurrence: None)
  Receive Date: 20050722
  Receipt Date: 20050712
  Transmission Date: 20060218
  Serious: Yes (Hospitalization)
  Sender: FDA-Public Use
  Company Number: ZONI002177

PATIENT
  Age: 70 Year
  Sex: Male

DRUGS (7)
  1. ZONISAMIDE [Suspect]
     Indication: EPILEPSY
     Dosage: 300 MG, 3 IN 1 D, ORAL
     Route: 048
     Dates: start: 20050426, end: 20050531
  2. VERAPAMIL HYDROCHLORIDE [Suspect]
     Indication: ARRHYTHMIA
     Dosage: 80 MG, 2 IN 1 D, ORAL
     Route: 048
     Dates: start: 20050428, end: 20050530
  3. SYMMETEREL (AMANTADINE HYDROCHLORIDE) [Suspect]
     Indication: CEREBRAL INFARCTION
     Dosage: 150 MG, 3 IN 1 D, ORAL
     Route: 048
     Dates: start: 20050428, end: 20050529
  4. TEGRETOL [Suspect]
     Indication: EPILEPSY
     Dosage: 200 MG, 2 IN 1 D, ORAL
     Route: 048
     Dates: start: 20050427, end: 20050529
  5. SUCRALFATE [Concomitant]
  6. MAGNESIUM OXIDE (MAGNESIUM OXIDE) [Concomitant]
  7. PHENOBARBITAL [Concomitant]

REACTIONS (2)
  - AGRANULOCYTOSIS [None]
  - PYREXIA [None]
